FAERS Safety Report 23310276 (Version 1)
Quarter: 2023Q4

REPORT INFORMATION
  Report Type: Spontaneous
  Country: US (occurrence: None)
  Receive Date: 20231218
  Receipt Date: 20231218
  Transmission Date: 20240109
  Serious: No
  Sender: FDA-Public Use
  Company Number: None

PATIENT
  Sex: Female

DRUGS (1)
  1. FORTEO [Suspect]
     Active Substance: TERIPARATIDE
     Indication: Osteoporosis
     Dosage: FREQUENCY : DAILY;?
     Route: 058
     Dates: start: 202312, end: 202312

REACTIONS (7)
  - Dizziness [None]
  - Anxiety [None]
  - Confusional state [None]
  - Feeling abnormal [None]
  - Wheezing [None]
  - Gastritis [None]
  - Pruritus [None]
